FAERS Safety Report 4417346-3 (Version None)
Quarter: 2004Q3

REPORT INFORMATION
  Report Type: 
  Country: None (occurrence: None)
  Receive Date: 20040806
  Receipt Date: 20040727
  Transmission Date: 20050211
  Serious: Yes (Hospitalization)
  Sender: FDA-Public Use
  Company Number: JP-GLAXOSMITHKLINE-B0341034A

PATIENT
  Age: 80 Year
  Sex: Female

DRUGS (5)
  1. PAXIL [Suspect]
     Indication: DEPRESSION
     Dosage: 10MG PER DAY
     Route: 048
     Dates: start: 20040301, end: 20040714
  2. SEPAZON [Concomitant]
     Route: 048
  3. LENDORM [Concomitant]
     Route: 048
  4. BUFFERIN [Concomitant]
     Route: 048
  5. CIBENOL [Concomitant]
     Route: 065

REACTIONS (3)
  - ATRIAL FIBRILLATION [None]
  - CARDIAC FAILURE [None]
  - TACHYCARDIA [None]
